FAERS Safety Report 8500907-X (Version None)
Quarter: 2012Q3

REPORT INFORMATION
  Report Type: 
  Country: None (occurrence: None)
  Receive Date: 20120710
  Receipt Date: 20120709
  Transmission Date: 20120928
  Serious: Yes (Death)
  Sender: FDA-Public Use
  Company Number: PHFR2012GB003898

PATIENT
  Age: 43 Year
  Sex: Female
  Weight: 100 kg

DRUGS (11)
  1. VITAMIN B-12 [Concomitant]
     Dosage: 50 MG, UNK
  2. CARBOCISTEINE [Concomitant]
     Dosage: 1 DF, TID
  3. FOLIC ACID [Concomitant]
     Dosage: 5 MG, UNK
  4. AMISULPRIDE [Concomitant]
     Dosage: 200 MG, BID
  5. OMEPRAZOLE [Concomitant]
     Dosage: 20 MG, UNK
  6. SIMVASTATIN [Concomitant]
     Dosage: 10 MG, UNK
  7. ASPIRIN [Concomitant]
     Dosage: 75 MG, UNK
  8. CITALOPRAM HYDROBROMIDE [Concomitant]
     Dosage: 30 MG, UNK
  9. MICRONOR [Concomitant]
     Dosage: 350 UG
  10. VALPROATE SODIUM [Concomitant]
     Dosage: 1 G, BID
  11. CLOZAPINE [Suspect]
     Indication: SCHIZOPHRENIA
     Dosage: 275 MG, BID
     Dates: start: 20060808

REACTIONS (2)
  - ANTIPSYCHOTIC DRUG LEVEL INCREASED [None]
  - CONVULSION [None]
